FAERS Safety Report 4269552-9 (Version None)
Quarter: 2004Q1

REPORT INFORMATION
  Report Type: 
  Country: None (occurrence: None)
  Receive Date: 20040113
  Receipt Date: 20040106
  Transmission Date: 20041129
  Serious: Yes (Hospitalization)
  Sender: FDA-Public Use
  Company Number: FR-BRISTOL-MYERS SQUIBB COMPANY-12469730

PATIENT
  Age: 86 Year
  Sex: Female

DRUGS (9)
  1. ELISOR TABS 20 MG [Suspect]
     Indication: HYPERCHOLESTEROLAEMIA
     Route: 048
     Dates: end: 20030915
  2. TRIVASTAL [Suspect]
     Route: 048
     Dates: start: 20021115, end: 20030915
  3. ARICEPT [Suspect]
     Indication: DEMENTIA ALZHEIMER'S TYPE
     Route: 048
     Dates: start: 20021115, end: 20030915
  4. DAFLON [Suspect]
     Route: 048
  5. TARDYFERON [Concomitant]
     Dates: end: 20030915
  6. DEPAKINE [Concomitant]
     Dates: start: 20030415, end: 20030915
  7. SYMBICORT [Concomitant]
  8. OXEOL [Concomitant]
  9. TOCO [Concomitant]

REACTIONS (2)
  - HYPONATRAEMIA [None]
  - INAPPROPRIATE ANTIDIURETIC HORMONE SECRETION [None]
